FAERS Safety Report 24783707 (Version 2)
Quarter: 2025Q1

REPORT INFORMATION
  Report Type: Spontaneous
  Country: JP (occurrence: JP)
  Receive Date: 20241227
  Receipt Date: 20250129
  Transmission Date: 20250408
  Serious: Yes (Other)
  Sender: MERCK
  Company Number: JP-MSD-2412JPN001598J

PATIENT
  Age: 69 Year
  Sex: Male

DRUGS (3)
  1. BELSOMRA [Suspect]
     Active Substance: SUVOREXANT
     Dosage: 20 MILLIGRAM, PRN
     Route: 048
  2. VIBEGRON [Suspect]
     Active Substance: VIBEGRON
     Route: 048
  3. TAMSULOSIN HYDROCHLORIDE [Concomitant]
     Active Substance: TAMSULOSIN HYDROCHLORIDE
     Route: 048

REACTIONS (3)
  - Urinary retention [Unknown]
  - Dysuria [Unknown]
  - Overdose [Unknown]
